FAERS Safety Report 7563475-5 (Version None)
Quarter: 2011Q2

REPORT INFORMATION
  Report Type: 
  Country: None (occurrence: None)
  Receive Date: 20110615
  Receipt Date: 20110609
  Transmission Date: 20111010
  Serious: Yes (Life-Threatening, Hospitalization)
  Sender: FDA-Public Use
  Company Number: 2011SP021346

PATIENT
  Age: 62 Year
  Sex: Female

DRUGS (3)
  1. DALMANE [Concomitant]
  2. SAPHRIS [Suspect]
     Indication: BIPOLAR DISORDER
     Dosage: 10 MG;BID;SL
     Route: 060
  3. ZOLOFT [Concomitant]

REACTIONS (1)
  - RHABDOMYOLYSIS [None]
